FAERS Safety Report 9705964 (Version 1)
Quarter: 2013Q4

REPORT INFORMATION
  Report Type: Report from Study
  Country: NL (occurrence: NL)
  Receive Date: 20131122
  Receipt Date: 20131122
  Transmission Date: 20140711
  Serious: Yes (Hospitalization)
  Sender: FDA-Public Use
  Company Number: NL-GLAXOSMITHKLINE-B0925633B

PATIENT
  Age: 64 Year
  Sex: Female
  Weight: 117 kg

DRUGS (6)
  1. DABRAFENIB [Suspect]
     Indication: METASTATIC MALIGNANT MELANOMA
     Dosage: 150MG TWICE PER DAY
     Route: 048
     Dates: start: 20130807, end: 20131028
  2. TRAMETINIB [Suspect]
     Indication: METASTATIC MALIGNANT MELANOMA
     Dosage: 2MG PER DAY
     Route: 048
     Dates: start: 20130807, end: 20131028
  3. ZYPREXA [Concomitant]
     Indication: ANTIPSYCHOTIC DRUG LEVEL THERAPEUTIC
     Dosage: 5MG TWICE PER DAY
     Route: 048
  4. HYDROCHLOROTHIAZIDE [Concomitant]
     Indication: BLOOD PRESSURE
     Dosage: 25MG PER DAY
     Route: 048
  5. ZOLPIDEM [Concomitant]
     Indication: HYPONATRAEMIA
     Dosage: 5MG PER DAY
     Route: 048
  6. HALOPERIDOL [Concomitant]
     Indication: ANTIPSYCHOTIC DRUG LEVEL THERAPEUTIC
     Dosage: 100MG EVERY 28 DAYS
     Route: 030

REACTIONS (3)
  - Pyrexia [Recovering/Resolving]
  - Neuropathy peripheral [Not Recovered/Not Resolved]
  - Pyrexia [Unknown]
